FAERS Safety Report 6581078-6 (Version None)
Quarter: 2010Q1

REPORT INFORMATION
  Report Type: 
  Country: None (occurrence: None)
  Receive Date: 20100215
  Receipt Date: 20100209
  Transmission Date: 20100710
  Serious: Yes (Life-Threatening, Hospitalization)
  Sender: FDA-Public Use
  Company Number: DE-NOVOPROD-304133

PATIENT
  Age: 62 Year
  Sex: Male
  Weight: 103 kg

DRUGS (10)
  1. VICTOZA [Suspect]
     Indication: DRUG USE FOR UNKNOWN INDICATION
     Dosage: UNK
     Route: 058
     Dates: start: 20091223, end: 20100120
  2. AMLODIPIN                          /00972401/ [Concomitant]
     Route: 048
  3. SIMVASTATIN [Concomitant]
  4. ASS [Concomitant]
     Route: 048
  5. BISOPROLOL [Concomitant]
     Route: 048
  6. METFORMIN [Concomitant]
     Route: 048
  7. GABAPENTIN [Concomitant]
     Route: 048
  8. RAMIPRIL [Concomitant]
     Route: 048
  9. EBRANTIL                           /00631801/ [Concomitant]
     Route: 048
  10. L-THYROXIN [Concomitant]
     Route: 048

REACTIONS (2)
  - CIRCULATORY COLLAPSE [None]
  - LOSS OF CONSCIOUSNESS [None]
